FAERS Safety Report 7954138-2 (Version None)
Quarter: 2011Q4

REPORT INFORMATION
  Report Type: 
  Country: None (occurrence: None)
  Receive Date: 20111129
  Receipt Date: 20111121
  Transmission Date: 20120403
  Serious: Yes (Hospitalization)
  Sender: FDA-Public Use
  Company Number: ALK_02127_2011

PATIENT
  Sex: Male
  Weight: 68.0396 kg

DRUGS (1)
  1. VIVITROL [Suspect]
     Indication: ALCOHOLISM
     Dosage: (380 MG 1X/MONTH INTRAMUSCULAR)
     Route: 030
     Dates: start: 20101019

REACTIONS (13)
  - CHILLS [None]
  - WHITE BLOOD CELL COUNT INCREASED [None]
  - DIZZINESS [None]
  - NAUSEA [None]
  - VISUAL IMPAIRMENT [None]
  - CONFUSIONAL STATE [None]
  - TRANSIENT GLOBAL AMNESIA [None]
  - MALAISE [None]
  - AMNESIA [None]
  - MUSCULOSKELETAL STIFFNESS [None]
  - HYPERHIDROSIS [None]
  - HEADACHE [None]
  - CEREBROVASCULAR ACCIDENT [None]
